FAERS Safety Report 6992850-2 (Version None)
Quarter: 2010Q3

REPORT INFORMATION
  Report Type: 
  Country: None (occurrence: None)
  Receive Date: 20100917
  Receipt Date: 20100909
  Transmission Date: 20110219
  Serious: Yes (Other)
  Sender: FDA-Public Use
  Company Number: B0560802B

PATIENT
  Sex: Female
  Weight: 70 kg

DRUGS (3)
  1. LAPATINIB [Suspect]
     Indication: BREAST CANCER
     Dosage: 1500MG PER DAY
     Route: 048
     Dates: start: 20080728, end: 20090728
  2. ACETAMINOPHEN [Suspect]
     Indication: ARTHRALGIA
     Dosage: 500MG AS REQUIRED
     Route: 048
     Dates: start: 20100101
  3. LORMETAZEPAM [Concomitant]
     Indication: INSOMNIA
     Dosage: 1MG PER DAY
     Route: 048
     Dates: start: 20081201

REACTIONS (1)
  - ILEUS [None]
